FAERS Safety Report 13133429 (Version 1)
Quarter: 2017Q1

REPORT INFORMATION
  Report Type: Spontaneous
  Country: SE (occurrence: SE)
  Receive Date: 20170120
  Receipt Date: 20170120
  Transmission Date: 20170428
  Serious: Yes (Other)
  Sender: FDA-Public Use
  Company Number: SE-ASTRAZENECA-2017SE05330

PATIENT
  Age: 75 Year
  Sex: Female

DRUGS (16)
  1. MOVENTIG [Suspect]
     Active Substance: NALOXEGOL OXALATE
     Indication: CONSTIPATION
     Route: 048
     Dates: start: 20161011, end: 20161014
  2. ARCOXIA [Concomitant]
     Active Substance: ETORICOXIB
  3. LASIX [Concomitant]
     Active Substance: FUROSEMIDE
  4. MINIDERM [Concomitant]
  5. MOVICOL [Concomitant]
     Active Substance: POLYETHYLENE GLYCOL 3350\POTASSIUM CHLORIDE\SODIUM BICARBONATE\SODIUM CHLORIDE
  6. ESOMEPRAZOLE [Concomitant]
     Active Substance: ESOMEPRAZOLE
  7. APROVEL [Concomitant]
     Active Substance: IRBESARTAN
  8. DETREMIN [Concomitant]
  9. OXYNORM [Concomitant]
     Active Substance: OXYCODONE HYDROCHLORIDE
  10. SAROTEN [Concomitant]
     Active Substance: AMITRIPTYLINE
  11. ALVEDON [Concomitant]
     Active Substance: ACETAMINOPHEN
  12. BISOPROLOL [Concomitant]
     Active Substance: BISOPROLOL
  13. ESCITALOPRAM [Concomitant]
     Active Substance: ESCITALOPRAM OXALATE
  14. BEHEPAN [Concomitant]
     Active Substance: HYDROXOCOBALAMIN
  15. DUROFERON [Concomitant]
     Active Substance: FERROUS SULFATE
  16. OXYCONTIN [Concomitant]
     Active Substance: OXYCODONE HYDROCHLORIDE

REACTIONS (3)
  - Nausea [Not Recovered/Not Resolved]
  - Hepatic enzyme increased [Not Recovered/Not Resolved]
  - Abdominal pain [Not Recovered/Not Resolved]

NARRATIVE: CASE EVENT DATE: 20161011
